FAERS Safety Report 5806035-6 (Version None)
Quarter: 2008Q3

REPORT INFORMATION
  Report Type: 
  Country: None (occurrence: None)
  Receive Date: 20080710
  Receipt Date: 20080707
  Transmission Date: 20090109
  Serious: Yes (Death, Other)
  Sender: FDA-Public Use
  Company Number: GB-ASTRAZENECA-2007GB01215

PATIENT
  Age: 38 Year
  Sex: Male
  Weight: 100 kg

DRUGS (8)
  1. QUETIAPINE FUMARATE [Suspect]
     Indication: SCHIZOPHRENIA
     Route: 048
     Dates: end: 20070519
  2. QUETIAPINE FUMARATE [Suspect]
     Route: 048
     Dates: start: 20070520, end: 20070526
  3. RISPERIDONE [Suspect]
     Indication: SCHIZOPHRENIA
     Route: 048
     Dates: start: 20070527, end: 20070530
  4. AMOXICILLIN [Concomitant]
     Indication: TONSILLITIS
     Route: 048
     Dates: start: 20070528, end: 20070529
  5. ATENOLOL [Concomitant]
     Dosage: 25 MG
     Route: 048
     Dates: end: 20070529
  6. DICLOFENAC SODIUM [Concomitant]
     Route: 048
     Dates: start: 20070528, end: 20070529
  7. FLUOXETINE [Concomitant]
     Dosage: 40MG
     Route: 048
     Dates: end: 20070529
  8. ACETAMINOPHEN [Concomitant]
     Route: 048
     Dates: end: 20080528

REACTIONS (2)
  - CARDIAC ARREST [None]
  - NEUROLEPTIC MALIGNANT SYNDROME [None]
